FAERS Safety Report 10671590 (Version 17)
Quarter: 2015Q4

REPORT INFORMATION
  Report Type: Spontaneous
  Country: US (occurrence: US)
  Receive Date: 20141223
  Receipt Date: 20151117
  Transmission Date: 20160304
  Serious: Yes (Hospitalization, Other)
  Sender: FDA-Public Use
  Company Number: US-GLAXOSMITHKLINE-US2014GSK040252

PATIENT
  Age: 62 Year
  Sex: Female
  Weight: 112.93 kg

DRUGS (15)
  1. FLOLAN [Suspect]
     Active Substance: EPOPROSTENOL SODIUM
     Dosage: 17 NG/KG/MIN CONTINUOUS; CONCENTRATION: 45,000 NG/ML; PUMP RATE: 63 ML/DAY; VIAL STRENGTH: 1.5 MG,CO
     Route: 042
     Dates: start: 20141209
  2. FLOLAN [Suspect]
     Active Substance: EPOPROSTENOL SODIUM
     Dosage: UNK, CO
     Dates: start: 20141212
  3. REVATIO [Concomitant]
     Active Substance: SILDENAFIL CITRATE
  4. FLOLAN [Suspect]
     Active Substance: EPOPROSTENOL SODIUM
     Dosage: 21 NG/KG/MIN
     Route: 042
     Dates: start: 20141214
  5. FLOLAN [Suspect]
     Active Substance: EPOPROSTENOL SODIUM
     Dosage: 31 NG/KG/MIN, CO
  6. FLOLAN [Suspect]
     Active Substance: EPOPROSTENOL SODIUM
     Indication: PULMONARY ARTERIAL HYPERTENSION
     Dosage: UNK
     Dates: start: 20141209
  7. FLOLAN [Suspect]
     Active Substance: EPOPROSTENOL SODIUM
     Dosage: UNK
  8. FLOLAN [Suspect]
     Active Substance: EPOPROSTENOL SODIUM
     Dosage: 33 NG/KG/MIN, CO
  9. ADEMPAS [Suspect]
     Active Substance: RIOCIGUAT
     Dosage: 0.5 MG, BID
  10. ADEMPAS [Suspect]
     Active Substance: RIOCIGUAT
     Indication: PRODUCT USED FOR UNKNOWN INDICATION
     Dosage: 0.5 MG, TID
  11. FLOLAN [Suspect]
     Active Substance: EPOPROSTENOL SODIUM
     Dosage: UNK, CO
  12. FLOLAN [Suspect]
     Active Substance: EPOPROSTENOL SODIUM
     Dosage: 11 NG/KG/MIN
  13. FLOLAN [Suspect]
     Active Substance: EPOPROSTENOL SODIUM
     Dosage: 30 NG/KG/MIN, CO
     Dates: start: 20141212
  14. ADEMPAS [Suspect]
     Active Substance: RIOCIGUAT
     Dosage: 0.5 MG, QD
  15. FLOLAN [Suspect]
     Active Substance: EPOPROSTENOL SODIUM
     Dosage: 11 NG/KG/MIN CONTINUOUS; CONCENTRATION: 30,000 NG/ML; PUMP RATE: 61 ML/DAY; VIAL STRENGTH: 1.5 MG,CO
     Route: 042
     Dates: start: 20141209

REACTIONS (33)
  - Central venous catheterisation [Recovered/Resolved]
  - Restless legs syndrome [Unknown]
  - Pain in jaw [Unknown]
  - Palpitations [Not Recovered/Not Resolved]
  - Ocular discomfort [Unknown]
  - Cough [Unknown]
  - Catheter site haemorrhage [Recovered/Resolved]
  - Device breakage [Unknown]
  - Dermatitis contact [Unknown]
  - Vomiting [Recovered/Resolved]
  - Pneumonia [Unknown]
  - Catheter site erythema [Unknown]
  - Diarrhoea [Unknown]
  - Drug intolerance [Unknown]
  - Device malfunction [Recovered/Resolved]
  - Hospitalisation [Recovered/Resolved]
  - Flushing [Unknown]
  - Neuropathy peripheral [Unknown]
  - Drug administration error [Unknown]
  - Malaise [Unknown]
  - Upper respiratory tract infection [Unknown]
  - Drug dose omission [Recovered/Resolved]
  - Nausea [Recovered/Resolved]
  - Adverse event [Unknown]
  - Catheter site discharge [Unknown]
  - Dyspnoea [Unknown]
  - Emergency care [Unknown]
  - Central venous catheter removal [Unknown]
  - Chest discomfort [Unknown]
  - Headache [Recovered/Resolved]
  - Catheter site pain [Unknown]
  - Catheter site extravasation [Unknown]
  - Blister [Unknown]

NARRATIVE: CASE EVENT DATE: 20130906
